FAERS Safety Report 10880303 (Version 1)
Quarter: 2015Q1

REPORT INFORMATION
  Report Type: Spontaneous
  Country: US (occurrence: US)
  Receive Date: 20150302
  Receipt Date: 20150302
  Transmission Date: 20150721
  Serious: No
  Sender: FDA-Public Use
  Company Number: US-009507513-1503USA000717

PATIENT
  Sex: Female

DRUGS (1)
  1. COPPERTONE SPF 8 [Suspect]
     Active Substance: OCTINOXATE\OCTOCRYLENE
     Indication: DRY SKIN PROPHYLAXIS
     Dosage: UNK, UNKNOWN
     Route: 061

REACTIONS (2)
  - Off label use [Unknown]
  - Product odour abnormal [Unknown]
